FAERS Safety Report 10588208 (Version 1)
Quarter: 2014Q4

REPORT INFORMATION
  Report Type: Report from Study
  Country: BR (occurrence: BR)
  Receive Date: 20141117
  Receipt Date: 20141117
  Transmission Date: 20150529
  Serious: Yes (Death, Hospitalization, Disabling)
  Sender: FDA-Public Use
  Company Number: PHHY2014BR148269

PATIENT
  Age: 68 Year
  Sex: Female

DRUGS (2)
  1. SANDOSTATIN LAR DEPOT [Suspect]
     Active Substance: OCTREOTIDE ACETATE
     Indication: OFF LABEL USE
     Dosage: 30 MG, EACH 28 DAYS
     Route: 065
     Dates: start: 20141014, end: 20141014
  2. SANDOSTATIN LAR DEPOT [Suspect]
     Active Substance: OCTREOTIDE ACETATE
     Indication: HEPATIC CANCER METASTATIC
     Dosage: 30 MG, EACH 28 DAYS
     Route: 065
     Dates: start: 201307, end: 201407

REACTIONS (5)
  - Multi-organ failure [Fatal]
  - Diarrhoea [Unknown]
  - Vomiting [Unknown]
  - Pyrexia [Unknown]
  - Abasia [Unknown]

NARRATIVE: CASE EVENT DATE: 201407
